FAERS Safety Report 6203478-6 (Version None)
Quarter: 2009Q2

REPORT INFORMATION
  Report Type: 
  Country: None (occurrence: None)
  Receive Date: 20090512
  Receipt Date: 20071116
  Transmission Date: 20091009
  Serious: Yes (Other)
  Sender: FDA-Public Use
  Company Number: 2007BH009812

PATIENT
  Age: 37 Year
  Sex: Male

DRUGS (1)
  1. HEMOFIL M [Suspect]
     Indication: FACTOR VIII DEFICIENCY
     Dosage: 21000 IU; EVERY WEEK

REACTIONS (1)
  - FACTOR VIII INHIBITION [None]
